FAERS Safety Report 18632670 (Version 5)
Quarter: 2021Q1

REPORT INFORMATION
  Report Type: Spontaneous
  Country: FR (occurrence: FR)
  Receive Date: 20201218
  Receipt Date: 20210208
  Transmission Date: 20210419
  Serious: Yes (Other)
  Sender: FDA-Public Use
  Company Number: FR-AUROBINDO-AUR-APL-2020-018383

PATIENT
  Age: 71 Year
  Sex: Male
  Weight: 107 kg

DRUGS (22)
  1. UPTRAVI [Interacting]
     Active Substance: SELEXIPAG
     Dosage: 1400 MICROGRAM, TWO TIMES A DAY (2800 MICROGRAM, ONCE A DAY)
     Route: 048
     Dates: start: 20200415
  2. UPTRAVI [Interacting]
     Active Substance: SELEXIPAG
     Dosage: 2000 MICROGRAM
     Route: 048
     Dates: start: 20201127
  3. UPTRAVI [Interacting]
     Active Substance: SELEXIPAG
     Dosage: 1200 MILLIGRAM
     Route: 048
     Dates: start: 20201211
  4. OXYGEN. [Suspect]
     Active Substance: OXYGEN
     Indication: PRODUCT USED FOR UNKNOWN INDICATION
     Dosage: UNK
     Route: 055
  5. UPTRAVI [Interacting]
     Active Substance: SELEXIPAG
     Dosage: 400 MICROGRAM, TWO TIMES A DAY (800 MICROGRAM, ONCE A DAY)
     Route: 048
     Dates: start: 20200311
  6. UPTRAVI [Interacting]
     Active Substance: SELEXIPAG
     Dosage: 1600 MILLIGRAM
     Route: 048
     Dates: start: 20201204
  7. UPTRAVI [Interacting]
     Active Substance: SELEXIPAG
     Dosage: 800 MILLIGRAM, ONCE A DAY
     Route: 048
     Dates: start: 20201218
  8. AMBRISENTAN [Concomitant]
     Active Substance: AMBRISENTAN
     Indication: PULMONARY ARTERIAL HYPERTENSION
     Dosage: UNK
     Route: 065
  9. UPTRAVI [Interacting]
     Active Substance: SELEXIPAG
     Dosage: 600 MICROGRAM, TWO TIMES A DAY (1200 MICROGRAM, ONCE A DAY)
     Route: 048
     Dates: start: 20200318
  10. UPTRAVI [Interacting]
     Active Substance: SELEXIPAG
     Dosage: 800 MICROGRAM, TWO TIMES A DAY (1600 MICROGRAM, ONCE A DAY)
     Route: 048
     Dates: start: 20200325
  11. UPTRAVI [Interacting]
     Active Substance: SELEXIPAG
     Dosage: 2800 MICROGRAM, ONCE A DAY
     Route: 048
     Dates: start: 20201113
  12. UPTRAVI [Interacting]
     Active Substance: SELEXIPAG
     Dosage: 1000 MICROGRAM, TWO TIMES A DAY (2000 MICROGRAM, ONCE A DAY)
     Route: 048
     Dates: start: 20200401
  13. UPTRAVI [Interacting]
     Active Substance: SELEXIPAG
     Dosage: 1600 MICROGRAM, TWO TIMES A DAY (3200 MICROGRAM, ONCE A DAY)
     Route: 048
     Dates: start: 20200422
  14. PREVISCAN [Concomitant]
     Indication: PRODUCT USED FOR UNKNOWN INDICATION
     Dosage: UNK
     Route: 065
     Dates: start: 20200304
  15. UPTRAVI [Interacting]
     Active Substance: SELEXIPAG
     Dosage: 1000 MILLIGRAM, TWO TIMES A DAY (2000 MILLIGRAM, ONCE A DAY)
     Route: 048
     Dates: start: 20201127
  16. UPTRAVI [Interacting]
     Active Substance: SELEXIPAG
     Dosage: 200 MICROGRAM, TWO TIMES A DAY (400 MICROGRAM, ONCE A DAY)
     Route: 048
     Dates: start: 20200305
  17. UPTRAVI [Interacting]
     Active Substance: SELEXIPAG
     Dosage: 1200 MICROGRAM, TWO TIMES A DAY (2400 MICROGRAM, ONCE A DAY)
     Route: 048
     Dates: start: 20200408
  18. CLOPIDOGREL [Suspect]
     Active Substance: CLOPIDOGREL BISULFATE
     Indication: PRODUCT USED FOR UNKNOWN INDICATION
     Dosage: UNK
     Route: 065
  19. UPTRAVI [Interacting]
     Active Substance: SELEXIPAG
     Indication: PULMONARY ARTERIAL HYPERTENSION
     Dosage: 200 MICROGRAM, ONCE A DAY
     Route: 048
     Dates: start: 20200226
  20. UPTRAVI [Interacting]
     Active Substance: SELEXIPAG
     Dosage: 2400 MICROGRAM, ONCE A DAY
     Route: 048
     Dates: start: 20201120
  21. UPTRAVI [Interacting]
     Active Substance: SELEXIPAG
     Dosage: 400 MILLIGRAM, ONCE A DAY
     Route: 048
     Dates: start: 20201225
  22. TADALAFIL. [Concomitant]
     Active Substance: TADALAFIL
     Indication: PULMONARY ARTERIAL HYPERTENSION
     Dosage: UNK
     Route: 065

REACTIONS (12)
  - Sleep disorder [Not Recovered/Not Resolved]
  - Pain in jaw [Recovering/Resolving]
  - Dyspnoea [Not Recovered/Not Resolved]
  - Dizziness [Recovered/Resolved]
  - Dyspnoea exertional [Not Recovered/Not Resolved]
  - Inappropriate schedule of product administration [Recovered/Resolved]
  - Drug interaction [Unknown]
  - International normalised ratio increased [Unknown]
  - Pulmonary arterial hypertension [Unknown]
  - Product prescribing error [Recovered/Resolved]
  - Nasal congestion [Not Recovered/Not Resolved]
  - Nasopharyngitis [Not Recovered/Not Resolved]

NARRATIVE: CASE EVENT DATE: 202003
